FAERS Safety Report 18550406 (Version 1)
Quarter: 2020Q4

REPORT INFORMATION
  Report Type: Spontaneous
  Country: DE (occurrence: DE)
  Receive Date: 20201126
  Receipt Date: 20201126
  Transmission Date: 20210114
  Serious: Yes (Hospitalization)
  Sender: FDA-Public Use
  Company Number: DE-TEVA-2020-DE-1851970

PATIENT
  Age: 79 Year
  Sex: Female
  Weight: 60.9 kg

DRUGS (10)
  1. DEXAMETHASON [Concomitant]
     Active Substance: DEXAMETHASONE
     Dosage: 2 MG, 1X
  2. CARBOPLATIN. [Suspect]
     Active Substance: CARBOPLATIN
     Route: 065
  3. LANITOP 0,1MG [Concomitant]
     Dosage: .1 MILLIGRAM DAILY; 1-0-0-0
  4. VOMEX [Concomitant]
     Active Substance: DIMENHYDRINATE
     Dosage: 50 MG, 3X
  5. TORASEMID [Concomitant]
     Active Substance: TORSEMIDE
     Dosage: 5 MILLIGRAM DAILY; 1-0-0-0
  6. MCP [Concomitant]
     Active Substance: METOCLOPRAMIDE HYDROCHLORIDE
     Dosage: 10 MG, 3X
  7. BISOPROLOL [Concomitant]
     Active Substance: BISOPROLOL
     Dosage: 10 MILLIGRAM DAILY; 1-0-1-0
  8. FENTANYL. [Concomitant]
     Active Substance: FENTANYL
     Dosage: 12 MCG/H
  9. GEMCITABINE. [Suspect]
     Active Substance: GEMCITABINE
     Route: 065
  10. TINZAPARIN [Concomitant]
     Active Substance: TINZAPARIN
     Dosage: .6 ML DAILY;  0-0-1-0

REACTIONS (6)
  - General physical health deterioration [Unknown]
  - Fatigue [Unknown]
  - Pyrexia [Unknown]
  - Musculoskeletal pain [Unknown]
  - Condition aggravated [Unknown]
  - Disorientation [Unknown]
